FAERS Safety Report 23950244 (Version 1)
Quarter: 2024Q2

REPORT INFORMATION
  Report Type: Spontaneous
  Country: US (occurrence: US)
  Receive Date: 20240607
  Receipt Date: 20240607
  Transmission Date: 20240715
  Serious: No
  Sender: FDA-Public Use
  Company Number: US-APOTEX-2023AP017824

PATIENT
  Age: 40 Year

DRUGS (1)
  1. CYCLOSPORINE [Suspect]
     Active Substance: CYCLOSPORINE
     Indication: Lymphadenopathy
     Dosage: UNK
     Route: 065
     Dates: end: 202003

REACTIONS (1)
  - Renal disorder [Unknown]
